FAERS Safety Report 18374463 (Version 2)
Quarter: 2021Q3

REPORT INFORMATION
  Report Type: Report from Study
  Country: US (occurrence: US)
  Receive Date: 20201013
  Receipt Date: 20210911
  Transmission Date: 20211014
  Serious: No
  Sender: FDA-Public Use
  Company Number: US-SHIRE-US202033235

PATIENT
  Age: 64 Year
  Sex: Female

DRUGS (8)
  1. TEDUGLUTIDE [Suspect]
     Active Substance: TEDUGLUTIDE
     Indication: SHORT-BOWEL SYNDROME
     Dosage: 0.396 (UNK UNIT), QD
     Route: 058
     Dates: start: 20200628
  2. TEDUGLUTIDE [Suspect]
     Active Substance: TEDUGLUTIDE
     Indication: SHORT-BOWEL SYNDROME
     Dosage: 0.396 (UNK UNIT), QD
     Route: 058
     Dates: start: 20200628
  3. TEDUGLUTIDE [Suspect]
     Active Substance: TEDUGLUTIDE
     Dosage: 0.396 MILLIGRAM, QOD
     Route: 050
     Dates: start: 20200628
  4. TEDUGLUTIDE [Suspect]
     Active Substance: TEDUGLUTIDE
     Indication: SHORT-BOWEL SYNDROME
     Dosage: 0.396 (UNK UNIT), QD
     Route: 058
     Dates: start: 20200628
  5. TEDUGLUTIDE [Suspect]
     Active Substance: TEDUGLUTIDE
     Dosage: 0.396 MILLIGRAM, QOD
     Route: 050
     Dates: start: 20200628
  6. TEDUGLUTIDE [Suspect]
     Active Substance: TEDUGLUTIDE
     Indication: SHORT-BOWEL SYNDROME
     Dosage: 0.396 (UNK UNIT), QD
     Route: 058
     Dates: start: 20200628
  7. TEDUGLUTIDE [Suspect]
     Active Substance: TEDUGLUTIDE
     Dosage: 0.396 MILLIGRAM, QOD
     Route: 050
     Dates: start: 20200628
  8. TEDUGLUTIDE [Suspect]
     Active Substance: TEDUGLUTIDE
     Dosage: 0.396 MILLIGRAM, QOD
     Route: 050
     Dates: start: 20200628

REACTIONS (2)
  - Weight increased [Recovering/Resolving]
  - Ill-defined disorder [Not Recovered/Not Resolved]

NARRATIVE: CASE EVENT DATE: 20200924
